FAERS Safety Report 8343307-8 (Version None)
Quarter: 2012Q2

REPORT INFORMATION
  Report Type: 
  Country: None (occurrence: None)
  Receive Date: 20120508
  Receipt Date: 20120503
  Transmission Date: 20120825
  Serious: Yes (Other)
  Sender: FDA-Public Use
  Company Number: PHHY2012NL032326

PATIENT
  Sex: Male
  Weight: 66 kg

DRUGS (16)
  1. SYMBICORT [Concomitant]
  2. TOBI [Suspect]
     Indication: CYSTIC FIBROSIS
     Dosage: 28 MG, BID
     Dates: start: 20120320, end: 20120401
  3. LANSOPRAZOLE [Concomitant]
     Dosage: 30 MG, QD
  4. TRISPORAL [Concomitant]
  5. APIDRA [Concomitant]
  6. LANTUS [Concomitant]
  7. PREDNISONE TAB [Concomitant]
  8. ALBUTEROL [Concomitant]
  9. THEOLAIR [Concomitant]
  10. PANCREASE HL [Concomitant]
  11. RHINOCORT [Concomitant]
  12. PULMOZYME [Concomitant]
  13. ZITHROMAX [Concomitant]
  14. NEBUSAL [Concomitant]
  15. CALCICHEW D3 [Concomitant]
  16. AQUADEKS [Concomitant]

REACTIONS (2)
  - DYSPNOEA [None]
  - COUGH [None]
